FAERS Safety Report 18664046 (Version 2)
Quarter: 2021Q1

REPORT INFORMATION
  Report Type: Report from Study
  Country: None (occurrence: DE)
  Receive Date: 20201225
  Receipt Date: 20210125
  Transmission Date: 20210419
  Serious: Yes (Death)
  Sender: FDA-Public Use
  Company Number: DE-ABBVIE-20K-062-3707315-00

PATIENT
  Age: 64 Year
  Sex: Male

DRUGS (2)
  1. DUODOPA [Suspect]
     Active Substance: CARBIDOPA\LEVODOPA
  2. DUODOPA [Suspect]
     Active Substance: CARBIDOPA\LEVODOPA
     Indication: PARKINSON^S DISEASE
     Dosage: MD 7 ML; CRD 2 ML/H; ED 1 ML/20 MG/ML 5 MG/ML GEL
     Route: 050
     Dates: start: 20200822

REACTIONS (1)
  - Death [Fatal]

NARRATIVE: CASE EVENT DATE: 20201207
